FAERS Safety Report 7809412-7 (Version None)
Quarter: 2011Q4

REPORT INFORMATION
  Report Type: 
  Country: None (occurrence: None)
  Receive Date: 20111007
  Receipt Date: 20110923
  Transmission Date: 20120403
  Serious: Yes (Hospitalization)
  Sender: FDA-Public Use
  Company Number: 11-599

PATIENT
  Age: 75 Year
  Sex: Male

DRUGS (7)
  1. FINASTERIDE [Concomitant]
  2. FUROSEMIDE [Concomitant]
  3. SIMVASTATIN [Concomitant]
  4. TAMSULOSIN HCL [Concomitant]
  5. ASPIRIN [Suspect]
     Dosage: 7.5 MG ORAL
     Route: 048
  6. IBUPROFEN [Suspect]
     Indication: PAIN
     Dosage: 400MG- 6X QD ORAL
     Route: 048
     Dates: start: 20110829, end: 20110902
  7. RAMIPRIL [Concomitant]

REACTIONS (2)
  - HAEMOGLOBIN DECREASED [None]
  - GASTROINTESTINAL HAEMORRHAGE [None]
